FAERS Safety Report 12499909 (Version 1)
Quarter: 2016Q2

REPORT INFORMATION
  Report Type: Spontaneous
  Country: None (occurrence: None)
  Receive Date: 20160624
  Receipt Date: 20160624
  Transmission Date: 20160815
  Serious: No
  Sender: FDA-Public Use
  Company Number: None

PATIENT
  Sex: Female
  Weight: 51.26 kg

DRUGS (2)
  1. NORGESTIM-ETH ESTRAD [Suspect]
     Active Substance: ETHINYL ESTRADIOL\NORGESTIMATE
     Indication: CONTRACEPTION
     Dosage: 0.18/0.215/0.25MG-25MCG QD ORAL
     Route: 048
     Dates: start: 201502
  2. NORGESTIM-ETH ESTRAD [Suspect]
     Active Substance: ETHINYL ESTRADIOL\NORGESTIMATE
     Indication: ORAL CONTRACEPTION
     Dosage: 0.18/0.215/0.25MG-25MCG QD ORAL
     Route: 048
     Dates: start: 201502

REACTIONS (3)
  - Nausea [None]
  - Vomiting [None]
  - Abdominal pain [None]
